FAERS Safety Report 7250322-4 (Version None)
Quarter: 2011Q1

REPORT INFORMATION
  Report Type: 
  Country: None (occurrence: None)
  Receive Date: 20110128
  Receipt Date: 20110121
  Transmission Date: 20110831
  Serious: Yes (Hospitalization)
  Sender: FDA-Public Use
  Company Number: JP-B.I. PHARMACEUTICALS,INC./RIDGEFIELD-2010-BP-14969NB

PATIENT
  Sex: Female
  Weight: 53 kg

DRUGS (4)
  1. ZETIA [Concomitant]
     Indication: HYPERCHOLESTEROLAEMIA
     Dosage: 10 MG
     Route: 048
     Dates: start: 20080715
  2. CYSTEN S [Concomitant]
     Indication: THYROID HORMONE REPLACEMENT THERAPY
     Dosage: 50 MCG
     Route: 048
     Dates: start: 20100210
  3. SPIRIVA [Suspect]
     Indication: CHRONIC OBSTRUCTIVE PULMONARY DISEASE
     Dosage: 18 MCG
     Route: 055
     Dates: start: 20100407, end: 20101207
  4. TAKEPRON [Concomitant]
     Indication: REFLUX OESOPHAGITIS
     Route: 048
     Dates: start: 20100210

REACTIONS (1)
  - PNEUMONIA [None]
